FAERS Safety Report 5331417-9 (Version None)
Quarter: 2007Q2

REPORT INFORMATION
  Report Type: 
  Country: None (occurrence: None)
  Receive Date: 20070516
  Receipt Date: 20070504
  Transmission Date: 20071010
  Serious: Yes (Death)
  Sender: FDA-Public Use
  Company Number: 122

PATIENT
  Sex: Male

DRUGS (1)
  1. FAZACLO 100MG ODT AVANIR PHARMACEUTICALS [Suspect]
     Dosage: 250MG PO DAILY
     Route: 048
     Dates: start: 20070421, end: 20070503

REACTIONS (1)
  - DEATH [None]
